FAERS Safety Report 8327955-7 (Version None)
Quarter: 2012Q2

REPORT INFORMATION
  Report Type: 
  Country: None (occurrence: None)
  Receive Date: 20120502
  Receipt Date: 20120420
  Transmission Date: 20120825
  Serious: Yes (Hospitalization)
  Sender: FDA-Public Use
  Company Number: US-SANOFI-AVENTIS-2012SA028195

PATIENT
  Age: 83 Year
  Sex: Male
  Weight: 77.11 kg

DRUGS (4)
  1. ATORVASTATIN CALCIUM [Concomitant]
  2. GLUCOSAMINE W/CHONDROITIN [Concomitant]
     Indication: ARTHRITIS
  3. PLAVIX [Suspect]
     Route: 048
     Dates: start: 20090101
  4. ASPIRIN [Suspect]
     Indication: ARTHRITIS
     Dates: start: 19700101

REACTIONS (3)
  - ANAEMIA [None]
  - DYSPNOEA [None]
  - HAEMORRHAGE [None]
